FAERS Safety Report 17718036 (Version 1)
Quarter: 2020Q2

REPORT INFORMATION
  Report Type: Spontaneous
  Country: SE (occurrence: SE)
  Receive Date: 20200428
  Receipt Date: 20200428
  Transmission Date: 20200714
  Serious: Yes (Other)
  Sender: FDA-Public Use
  Company Number: SE-ACCORD-179632

PATIENT
  Age: 15 Year
  Sex: Female

DRUGS (1)
  1. QUETIAPINE. [Suspect]
     Active Substance: QUETIAPINE
     Indication: ANXIETY
     Dosage: 25 MG 2 TN
     Route: 048
     Dates: start: 20190617, end: 20200323

REACTIONS (2)
  - Polymenorrhagia [Unknown]
  - Menorrhagia [Unknown]

NARRATIVE: CASE EVENT DATE: 2019
